FAERS Safety Report 5489461-7 (Version None)
Quarter: 2007Q4

REPORT INFORMATION
  Report Type: 
  Country: None (occurrence: None)
  Receive Date: 20071018
  Receipt Date: 20071004
  Transmission Date: 20080405
  Serious: Yes (Hospitalization)
  Sender: FDA-Public Use
  Company Number: TW-ELI_LILLY_AND_COMPANY-TW200707004591

PATIENT
  Sex: Male
  Weight: 46 kg

DRUGS (1)
  1. ATOMOXETINE HCL [Suspect]
     Indication: ATTENTION DEFICIT/HYPERACTIVITY DISORDER
     Dosage: 1.1 MG, DAILY (1/D)
     Route: 048
     Dates: start: 20070710, end: 20070717

REACTIONS (3)
  - APPENDICITIS [None]
  - APPENDICITIS PERFORATED [None]
  - PERITONITIS [None]
